FAERS Safety Report 4441011-X (Version None)
Quarter: 2004Q3

REPORT INFORMATION
  Report Type: 
  Country: None (occurrence: None)
  Receive Date: 20040728
  Receipt Date: 20040414
  Transmission Date: 20050211
  Serious: No
  Sender: FDA-Public Use
  Company Number: USA040464919

PATIENT
  Age: 40 Year
  Sex: Female

DRUGS (3)
  1. STRATTERA [Suspect]
     Indication: ATTENTION DEFICIT/HYPERACTIVITY DISORDER
     Dosage: 40 MG DAY
     Dates: start: 20040412
  2. LEXAPRO [Concomitant]
  3. EFFEXOR [Concomitant]

REACTIONS (4)
  - AMNESIA [None]
  - DISTURBANCE IN ATTENTION [None]
  - STRESS SYMPTOMS [None]
  - THINKING ABNORMAL [None]
